FAERS Safety Report 5158364-X (Version None)
Quarter: 2006Q4

REPORT INFORMATION
  Report Type: 
  Country: None (occurrence: None)
  Receive Date: 20061128
  Receipt Date: 20060216
  Transmission Date: 20070319
  Serious: No
  Sender: FDA-Public Use
  Company Number: US-GLAXOSMITHKLINE-A0593989A

PATIENT
  Age: 59 Year
  Sex: Female

DRUGS (3)
  1. LANOXIN [Suspect]
     Indication: ATRIAL FIBRILLATION
     Dosage: .25MG PER DAY
     Route: 048
     Dates: start: 19860101
  2. INDERAL [Concomitant]
  3. ALPRAZOLAM [Concomitant]

REACTIONS (1)
  - HEART RATE IRREGULAR [None]
